FAERS Safety Report 7085383-9 (Version None)
Quarter: 2010Q4

REPORT INFORMATION
  Report Type: 
  Country: None (occurrence: None)
  Receive Date: 20101028
  Receipt Date: 20101019
  Transmission Date: 20110411
  Serious: Yes (Death)
  Sender: FDA-Public Use
  Company Number: 107358

PATIENT
  Sex: Female

DRUGS (1)
  1. DAUNORUBICIN HCL [Suspect]
     Indication: MYELOID LEUKAEMIA
     Dosage: 85MG
     Dates: start: 20030619, end: 20030623

REACTIONS (2)
  - PNEUMONIA [None]
  - RESPIRATORY FAILURE [None]
